FAERS Safety Report 4840690-2 (Version None)
Quarter: 2005Q4

REPORT INFORMATION
  Report Type: 
  Country: None (occurrence: None)
  Receive Date: 20051027
  Receipt Date: 20050311
  Transmission Date: 20060501
  Serious: Yes (Other)
  Sender: FDA-Public Use
  Company Number: HQWYE162916MAR05

PATIENT
  Age: 67 Year
  Sex: Female
  Weight: 82.63 kg

DRUGS (1)
  1. PREMARIN [Suspect]
     Indication: HORMONE REPLACEMENT THERAPY
     Dosage: 0.65MG THEN REDUCED TO
     Dates: start: 19720101, end: 20030501

REACTIONS (1)
  - BREAST CANCER [None]
